FAERS Safety Report 22398445 (Version 1)
Quarter: 2023Q2

REPORT INFORMATION
  Report Type: Spontaneous
  Country: SO (occurrence: SO)
  Receive Date: 20230602
  Receipt Date: 20230602
  Transmission Date: 20230722
  Serious: Yes (Hospitalization)
  Sender: FDA-Public Use
  Company Number: SO-STRIDES ARCOLAB LIMITED-2023SP008178

PATIENT
  Age: 36 Year
  Sex: Male

DRUGS (1)
  1. TRAMADOL [Suspect]
     Active Substance: TRAMADOL
     Indication: Erectile dysfunction
     Dosage: UNK
     Route: 065

REACTIONS (5)
  - Cerebral haemorrhage [Recovered/Resolved]
  - Haemorrhagic stroke [Recovered/Resolved]
  - Oedema [Recovered/Resolved]
  - Drug dependence [Unknown]
  - Off label use [Unknown]
